FAERS Safety Report 24814465 (Version 1)
Quarter: 2025Q1

REPORT INFORMATION
  Report Type: Spontaneous
  Country: IT (occurrence: IT)
  Receive Date: 20250107
  Receipt Date: 20250107
  Transmission Date: 20250409
  Serious: Yes (Hospitalization, Other)
  Sender: JUBILANT
  Company Number: None

PATIENT
  Age: 68 Year
  Sex: Male

DRUGS (3)
  1. OLANZAPINE [Suspect]
     Active Substance: OLANZAPINE
     Indication: Bipolar disorder
     Dosage: 5 MG, ONCE PER DAY
     Route: 065
  2. LITHIUM [Suspect]
     Active Substance: LITHIUM
     Indication: Bipolar disorder
     Dosage: 900 MG, ONCE PER DAY
     Route: 065
  3. PAROXETINE [Concomitant]
     Active Substance: PAROXETINE
     Indication: Bipolar disorder
     Dosage: 20 MG, ONCE PER DAY
     Route: 065

REACTIONS (6)
  - Encephalopathy [Recovering/Resolving]
  - Head injury [Unknown]
  - Fall [Unknown]
  - Pneumonia [Recovered/Resolved]
  - Hypernatraemia [Recovered/Resolved]
  - Neurotoxicity [Recovering/Resolving]
